FAERS Safety Report 4866579-0 (Version None)
Quarter: 2005Q4

REPORT INFORMATION
  Report Type: 
  Country: None (occurrence: None)
  Receive Date: 20051221
  Receipt Date: 20051206
  Transmission Date: 20060501
  Serious: Yes (Hospitalization)
  Sender: FDA-Public Use
  Company Number: 217288

PATIENT
  Age: 69 Year
  Sex: Female

DRUGS (15)
  1. AVASTIN [Suspect]
     Indication: COLON CANCER
     Dosage: 375 MG, INTRAVENOUS
     Route: 042
     Dates: start: 20050802, end: 20050802
  2. AVASTIN [Suspect]
  3. AVASTIN [Suspect]
  4. AVASTIN [Suspect]
  5. AVASTIN [Suspect]
  6. OXALIPLATIN (OXALIPLATIN) [Concomitant]
  7. FLUOROURACIL [Concomitant]
  8. LEUCOVORIN CALCIUM [Concomitant]
  9. LIPITOR [Concomitant]
  10. ASPIRIN [Concomitant]
  11. CARDIZEM [Concomitant]
  12. ALDACTAZIDE [Concomitant]
  13. ADVAIR DISKUS 100/50 [Concomitant]
  14. CLARITIN [Concomitant]
  15. TRAZODONE HCL [Concomitant]

REACTIONS (15)
  - ANGINA PECTORIS [None]
  - CARDIAC ARREST [None]
  - CARDIOMYOPATHY [None]
  - CHEST PAIN [None]
  - EJECTION FRACTION DECREASED [None]
  - ELECTROCARDIOGRAM T WAVE INVERSION [None]
  - EXTRASYSTOLES [None]
  - PULMONARY EMBOLISM [None]
  - TORSADE DE POINTES [None]
  - VENTRICULAR ARRHYTHMIA [None]
  - VENTRICULAR DYSFUNCTION [None]
  - VENTRICULAR EXTRASYSTOLES [None]
  - VENTRICULAR FIBRILLATION [None]
  - VENTRICULAR HYPOKINESIA [None]
  - VENTRICULAR TACHYCARDIA [None]
